FAERS Safety Report 9900802 (Version 1)
Quarter: 2014Q1

REPORT INFORMATION
  Report Type: Report from Study
  Country: US (occurrence: US)
  Receive Date: 20140217
  Receipt Date: 20140217
  Transmission Date: 20141002
  Serious: Yes (Death, Hospitalization, Other)
  Sender: FDA-Public Use
  Company Number: US-ROCHE-1348152

PATIENT
  Sex: Female
  Weight: 63.2 kg

DRUGS (6)
  1. VISMODEGIB [Suspect]
     Indication: PANCREATIC CARCINOMA
     Route: 048
     Dates: start: 20131221, end: 20131227
  2. SIROLIMUS [Suspect]
     Indication: PANCREATIC CARCINOMA
     Route: 048
     Dates: start: 20131221, end: 20131221
  3. GEMCITABINE [Concomitant]
     Route: 065
     Dates: start: 20130821, end: 20131102
  4. COMPAZINE [Concomitant]
  5. CREON [Concomitant]
  6. LOVENOX [Concomitant]

REACTIONS (10)
  - Disease progression [Fatal]
  - Blood bilirubin increased [Unknown]
  - Hyperglycaemia [Unknown]
  - Gamma-glutamyltransferase increased [Unknown]
  - Hyponatraemia [Unknown]
  - Thrombocytopenia [Unknown]
  - Aspartate aminotransferase increased [Unknown]
  - Fatigue [Unknown]
  - Blood alkaline phosphatase increased [Unknown]
  - Dyspnoea [Unknown]
